FAERS Safety Report 4961504-6 (Version None)
Quarter: 2006Q1

REPORT INFORMATION
  Report Type: 
  Country: None (occurrence: None)
  Receive Date: 20060201
  Receipt Date: 20051029
  Transmission Date: 20060701
  Serious: No
  Sender: FDA-Public Use
  Company Number: 2005PV003815

PATIENT
  Age: 57 Year
  Sex: Female
  Weight: 97.977 kg

DRUGS (10)
  1. BYETTA [Suspect]
     Indication: DIABETES MELLITUS NON-INSULIN-DEPENDENT
     Dosage: 5 MG; BID; SC
     Route: 058
     Dates: start: 20051027
  2. LANTUS [Concomitant]
  3. PRECOSE [Concomitant]
  4. PREDNISONE [Concomitant]
  5. METFORMIN [Concomitant]
  6. MAXZIDE [Concomitant]
  7. ALLEGRA [Concomitant]
  8. CELEBREX [Concomitant]
  9. OMEPRAZOLE [Concomitant]
  10. VICODIN [Concomitant]

REACTIONS (6)
  - BLOOD GLUCOSE DECREASED [None]
  - DIARRHOEA [None]
  - NAUSEA [None]
  - RETCHING [None]
  - VOMITING [None]
  - WEIGHT DECREASED [None]
